FAERS Safety Report 20211741 (Version 1)
Quarter: 2021Q4

REPORT INFORMATION
  Report Type: Spontaneous
  Country: GB (occurrence: GB)
  Receive Date: 20211221
  Receipt Date: 20211221
  Transmission Date: 20220303
  Serious: Yes (Other)
  Sender: FDA-Public Use
  Company Number: GB-MYLANLABS-2021M1093543

PATIENT
  Age: 48 Year
  Sex: Male

DRUGS (2)
  1. CLOZARIL [Suspect]
     Active Substance: CLOZAPINE
     Indication: Schizophrenia
     Dosage: UNK
     Route: 048
     Dates: start: 20131119
  2. CLOZARIL [Suspect]
     Active Substance: CLOZAPINE
     Dosage: 25 MILLIGRAM/ START DATE: 14-DEC-2021

REACTIONS (4)
  - Hallucination, auditory [Unknown]
  - Treatment noncompliance [Unknown]
  - Self-induced vomiting [Unknown]
  - Factitious disorder [Unknown]

NARRATIVE: CASE EVENT DATE: 20211201
